FAERS Safety Report 19840941 (Version 1)
Quarter: 2021Q3

REPORT INFORMATION
  Report Type: Spontaneous
  Country: CA (occurrence: CA)
  Receive Date: 20210916
  Receipt Date: 20210916
  Transmission Date: 20211014
  Serious: Yes (Other)
  Sender: FDA-Public Use
  Company Number: CA-TEVA-2021-CA-1952709

PATIENT
  Age: 61 Year
  Sex: Male
  Weight: 35 kg

DRUGS (5)
  1. ERGOCALCIFEROL. [Concomitant]
     Active Substance: ERGOCALCIFEROL
  2. AMLODIPINE [Concomitant]
     Active Substance: AMLODIPINE BESYLATE
  3. ROSUVASTATIN CALCIUM. [Suspect]
     Active Substance: ROSUVASTATIN CALCIUM
     Indication: PRODUCT USED FOR UNKNOWN INDICATION
     Route: 048
  4. OMEGA ? 3 [Concomitant]
  5. TAMSULOSIN CR [Concomitant]
     Active Substance: TAMSULOSIN

REACTIONS (2)
  - Myalgia [Recovered/Resolved]
  - Gilbert^s syndrome [Recovered/Resolved]
